FAERS Safety Report 13910424 (Version 1)
Quarter: 2017Q3

REPORT INFORMATION
  Report Type: Spontaneous
  Country: US (occurrence: US)
  Receive Date: 20170825
  Receipt Date: 20170825
  Transmission Date: 20171127
  Serious: Yes (Disabling)
  Sender: FDA-Public Use
  Company Number: None

PATIENT
  Age: 87 Year
  Sex: Female
  Weight: 57.6 kg

DRUGS (10)
  1. MULTIVITAMIN [Concomitant]
     Active Substance: VITAMINS
  2. FERROUS SULFATE. [Concomitant]
     Active Substance: FERROUS SULFATE
  3. VITAMIN B12 [Concomitant]
     Active Substance: CYANOCOBALAMIN
  4. DOFETILIDE. [Suspect]
     Active Substance: DOFETILIDE
     Indication: ATRIAL FIBRILLATION
     Dosage: ?          QUANTITY:1 CAPSULE(S);?
     Route: 048
     Dates: start: 20170206, end: 20170825
  5. DITROPAN [Concomitant]
     Active Substance: OXYBUTYNIN CHLORIDE
  6. FOLGARD [Concomitant]
  7. ASCORBIC ACID. [Concomitant]
     Active Substance: ASCORBIC ACID
  8. TIKOSYN [Concomitant]
     Active Substance: DOFETILIDE
  9. PREVACID [Concomitant]
     Active Substance: LANSOPRAZOLE
  10. MIRALAX [Concomitant]
     Active Substance: POLYETHYLENE GLYCOL 3350

REACTIONS (3)
  - Large intestinal haemorrhage [None]
  - Headache [None]
  - Temporal arteritis [None]

NARRATIVE: CASE EVENT DATE: 20170825
